FAERS Safety Report 19153068 (Version 1)
Quarter: 2021Q2

REPORT INFORMATION
  Report Type: Spontaneous
  Country: US (occurrence: US)
  Receive Date: 20210418
  Receipt Date: 20210418
  Transmission Date: 20210717
  Serious: No
  Sender: FDA-Public Use
  Company Number: None

PATIENT
  Age: 60 Year
  Sex: Female
  Weight: 69.75 kg

DRUGS (20)
  1. ESTRADIOL GEL [Concomitant]
  2. PROGESTERONE. [Concomitant]
     Active Substance: PROGESTERONE
  3. FOLIC ACID. [Concomitant]
     Active Substance: FOLIC ACID
  4. CYCLOBENZAPRINE. [Concomitant]
     Active Substance: CYCLOBENZAPRINE
  5. PLAQUENIL [Concomitant]
     Active Substance: HYDROXYCHLOROQUINE SULFATE
  6. FISH OIL [Concomitant]
     Active Substance: FISH OIL
  7. BACLOFEN. [Concomitant]
     Active Substance: BACLOFEN
  8. MULTIVITAMIN [Concomitant]
     Active Substance: VITAMINS
  9. METHOTREXATE. [Suspect]
     Active Substance: METHOTREXATE
     Indication: RHEUMATOID ARTHRITIS
     Dosage: ?          QUANTITY:8 TABLET(S);OTHER FREQUENCY:ONCE PER WEEK;?
     Route: 048
  10. ZYRTEC [Concomitant]
     Active Substance: CETIRIZINE HYDROCHLORIDE
  11. MONTELUKAST [Concomitant]
     Active Substance: MONTELUKAST SODIUM
  12. KETOPROFEN. [Concomitant]
     Active Substance: KETOPROFEN
  13. PREDNISONE. [Concomitant]
     Active Substance: PREDNISONE
  14. KNEE BRACES [Concomitant]
  15. GABAPENTIN. [Concomitant]
     Active Substance: GABAPENTIN
  16. VITAMIN B COMPLEX [Concomitant]
     Active Substance: CYANOCOBALAMIN\DEXPANTHENOL\NIACINAMIDE\PYRIDOXINE HYDROCHLORIDE\RIBOFLAVIN 5^-PHOSPHATE SODIUM\THIAMINE HYDROCHLORIDE\VITAMIN B COMPLEX
  17. ASTHAMANEX [Concomitant]
  18. ALBUTEROL. [Concomitant]
     Active Substance: ALBUTEROL
  19. KETAMINE COMPOUND PAIN CREAM [Concomitant]
  20. LIDOCAINE. [Concomitant]
     Active Substance: LIDOCAINE

REACTIONS (7)
  - Sinusitis [None]
  - Oropharyngeal pain [None]
  - Stomatitis [None]
  - Alopecia [None]
  - Malaise [None]
  - Fatigue [None]
  - Epistaxis [None]

NARRATIVE: CASE EVENT DATE: 20201201
